FAERS Safety Report 13304516 (Version 1)
Quarter: 2017Q1

REPORT INFORMATION
  Report Type: Report from Study
  Country: CA (occurrence: CA)
  Receive Date: 20170308
  Receipt Date: 20170308
  Transmission Date: 20170428
  Serious: Yes (Hospitalization)
  Sender: FDA-Public Use
  Company Number: CA-BEH-2012032853

PATIENT
  Age: 56 Year
  Sex: Male

DRUGS (4)
  1. HIZENTRA [Suspect]
     Active Substance: HUMAN IMMUNOGLOBULIN G
     Indication: LUNG INFECTION
     Dosage: 7 G, QW
     Route: 058
     Dates: start: 20120612
  2. PREDNISONE. [Concomitant]
     Active Substance: PREDNISONE
  3. HIZENTRA [Suspect]
     Active Substance: HUMAN IMMUNOGLOBULIN G
     Dosage: BY 80
     Route: 058
     Dates: start: 20120509
  4. HIZENTRA [Suspect]
     Active Substance: HUMAN IMMUNOGLOBULIN G
     Dosage: 9 G, QW
     Route: 058

REACTIONS (2)
  - Drug ineffective for unapproved indication [Unknown]
  - Lung infection [Unknown]

NARRATIVE: CASE EVENT DATE: 20120509
